FAERS Safety Report 7634378-2 (Version None)
Quarter: 2011Q3

REPORT INFORMATION
  Report Type: 
  Country: None (occurrence: None)
  Receive Date: 20110725
  Receipt Date: 20101213
  Transmission Date: 20111222
  Serious: Yes (Other)
  Sender: FDA-Public Use
  Company Number: US-BAYER-200935875NA

PATIENT
  Age: 60 Year
  Sex: Female
  Weight: 112.93 kg

DRUGS (46)
  1. DEMEROL [Concomitant]
  2. LASIX [Concomitant]
  3. MAGNEVIST [Suspect]
     Indication: ANGIOGRAM
     Route: 042
     Dates: start: 20020423, end: 20020423
  4. MULTIHANCE [Suspect]
     Indication: IMAGING PROCEDURE
  5. RIBAVIRIN [Concomitant]
  6. SENSIPAR [Concomitant]
  7. VITAMIN K TAB [Concomitant]
     Route: 042
     Dates: start: 20090601
  8. COUMADIN [Concomitant]
  9. ACTOS [Concomitant]
  10. REQUIP [Concomitant]
  11. OPTIMARK [Suspect]
     Indication: IMAGING PROCEDURE
  12. PROHANCE [Suspect]
     Indication: IMAGING PROCEDURE
  13. DIALYTE [Concomitant]
  14. DIOVAN [Concomitant]
  15. HECTOROL [Concomitant]
  16. INTERFERON BETA-1B [Concomitant]
  17. RIBAVIRIN [Concomitant]
  18. MAGNEVIST [Suspect]
     Indication: NUCLEAR MAGNETIC RESONANCE IMAGING BRAIN
     Dates: start: 20061115, end: 20061115
  19. LIPITOR [Concomitant]
     Indication: HYPERCHOLESTEROLAEMIA
     Dosage: 80 MG, UNK
  20. REQUIP [Concomitant]
  21. RENAGEL [Concomitant]
  22. CALCITRIOL [Concomitant]
  23. PROCRIT [Concomitant]
  24. VALIUM [Concomitant]
  25. TOPROL-XL [Concomitant]
     Dosage: 25 MG, QD
  26. PREDNISONE [Concomitant]
     Indication: BACK PAIN
     Dosage: 20 MG, UNK
  27. DILAUDID [Concomitant]
  28. AMITRIPTYLINE HCL [Concomitant]
  29. ACTOS [Concomitant]
  30. NORVASC [Concomitant]
     Dosage: 10 MG, QD
  31. GLYBURIDE MICRO [Concomitant]
     Indication: DIABETES MELLITUS
     Dosage: 3 MG (ONE-HALF TAB), QD
  32. TYLENOL W/ CODEINE NO. 3 [Concomitant]
     Dosage: ONE TAB, BID
  33. AVANDIA [Concomitant]
     Dosage: 4 MG, QD
  34. DIOVAN [Concomitant]
     Dosage: 160 MG, QD
  35. MORPHINE SULFATE [Concomitant]
  36. MAGNEVIST [Suspect]
     Indication: NUCLEAR MAGNETIC RESONANCE IMAGING ABDOMINAL
     Dates: start: 20030204, end: 20030204
  37. EPO [Concomitant]
     Dosage: AS USED DOSE: 40,000 U
  38. FERREX [Concomitant]
  39. ZETIA [Concomitant]
     Dosage: 10 MG, QD
  40. PERCOCET [Concomitant]
     Indication: BACK PAIN
  41. IRON SUPPLEMENT [Concomitant]
  42. KALETRA [Concomitant]
  43. OMNISCAN [Suspect]
     Indication: IMAGING PROCEDURE
  44. INTERFERON [Concomitant]
  45. PROCRIT [Concomitant]
  46. FLEXERIL [Concomitant]
     Indication: BACK PAIN
     Dosage: 10 MG, TID

REACTIONS (17)
  - FATIGUE [None]
  - MASS [None]
  - NEPHROGENIC SYSTEMIC FIBROSIS [None]
  - RASH [None]
  - OEDEMA PERIPHERAL [None]
  - SKIN FIBROSIS [None]
  - FIBROSIS [None]
  - PRURITUS [None]
  - PAIN IN EXTREMITY [None]
  - PAIN [None]
  - GENERAL PHYSICAL HEALTH DETERIORATION [None]
  - BACK PAIN [None]
  - SKIN INDURATION [None]
  - FORMICATION [None]
  - GAIT DISTURBANCE [None]
  - MUSCULOSKELETAL STIFFNESS [None]
  - SKIN DISCOLOURATION [None]
